FAERS Safety Report 5214337-X (Version None)
Quarter: 2007Q1

REPORT INFORMATION
  Report Type: 
  Country: None (occurrence: None)
  Receive Date: 20070122
  Receipt Date: 20070116
  Transmission Date: 20070707
  Serious: Yes (Death)
  Sender: FDA-Public Use
  Company Number: GB-AVENTIS-200710381GDDC

PATIENT

DRUGS (1)
  1. GLYBURIDE [Suspect]

REACTIONS (1)
  - CORONARY ARTERY DISEASE [None]
